FAERS Safety Report 9562890 (Version 1)
Quarter: 2013Q3

REPORT INFORMATION
  Report Type: Report from Study
  Country: JP (occurrence: JP)
  Receive Date: 20130927
  Receipt Date: 20130927
  Transmission Date: 20140515
  Serious: Yes (Other)
  Sender: FDA-Public Use
  Company Number: JP-BRISTOL-MYERS SQUIBB COMPANY-19467141

PATIENT
  Sex: 0

DRUGS (1)
  1. SPRYCEL [Suspect]
     Route: 048

REACTIONS (2)
  - Subdural haematoma [Unknown]
  - Hydrocephalus [Unknown]
